FAERS Safety Report 4316259-5 (Version None)
Quarter: 2004Q1

REPORT INFORMATION
  Report Type: 
  Country: None (occurrence: None)
  Receive Date: 20040310
  Receipt Date: 20030203
  Transmission Date: 20041129
  Serious: Yes (Other)
  Sender: FDA-Public Use
  Company Number: HQ6013403JAN2003

PATIENT
  Age: 67 Year
  Sex: Female
  Weight: 73.55 kg

DRUGS (2)
  1. PROTONIX [Suspect]
     Indication: GASTRIC DISORDER
     Dosage: ORAL
     Route: 048
     Dates: start: 20021118, end: 20021228
  2. PREMARIN [Concomitant]

REACTIONS (2)
  - ORAL PAIN [None]
  - UNEXPECTED THERAPEUTIC DRUG EFFECT [None]
